FAERS Safety Report 16625172 (Version 3)
Quarter: 2019Q3

REPORT INFORMATION
  Report Type: Spontaneous
  Country: US (occurrence: US)
  Receive Date: 20190724
  Receipt Date: 20190916
  Transmission Date: 20191004
  Serious: Yes (Other)
  Sender: FDA-Public Use
  Company Number: US-PFIZER INC-2019307214

PATIENT
  Age: 68 Year
  Sex: Female
  Weight: 60.77 kg

DRUGS (7)
  1. LEVOTHYROXINE. [Concomitant]
     Active Substance: LEVOTHYROXINE
     Indication: THYROID DISORDER
     Dosage: 0.5 DF, DAILY (75MCG TABLET: BREAK IN HALF AND TAKE ONCE DAILY 1 HOUR BEFORE EATING)
     Dates: start: 20190531
  2. FUROSEMIDE. [Concomitant]
     Active Substance: FUROSEMIDE
     Indication: ABDOMINAL PAIN UPPER
     Dosage: UNK
  3. IPRATROPIUM BROMIDE. [Concomitant]
     Active Substance: IPRATROPIUM BROMIDE
     Indication: DYSPNOEA
     Dosage: UNK, AS NEEDED (INHALED VIA NEBULIZER 3 TIMES DAILY)
  4. ZITHROMAX [Concomitant]
     Active Substance: AZITHROMYCIN DIHYDRATE
     Indication: PNEUMONIA
     Dosage: UNK
  5. OMEPRAZOLE. [Concomitant]
     Active Substance: OMEPRAZOLE
     Indication: ABDOMINAL DISCOMFORT
     Dosage: 40 MG, UNK
     Dates: start: 20190531
  6. CLINDAMYCIN. [Suspect]
     Active Substance: CLINDAMYCIN
     Indication: PNEUMONIA
     Dosage: UNK, 4X/DAY
     Route: 048
  7. LEVAQUIN [Concomitant]
     Active Substance: LEVOFLOXACIN
     Indication: PNEUMONIA
     Dosage: UNK

REACTIONS (13)
  - Abdominal pain upper [Unknown]
  - Depressed mood [Unknown]
  - Asthenia [Unknown]
  - Joint swelling [Unknown]
  - Feeding disorder [Unknown]
  - Weight increased [Unknown]
  - Drug ineffective [Unknown]
  - Feeling abnormal [Unknown]
  - Pain [Unknown]
  - Gait inability [Unknown]
  - Peripheral swelling [Unknown]
  - Pharyngeal swelling [Unknown]
  - Mouth swelling [Unknown]

NARRATIVE: CASE EVENT DATE: 201907
